FAERS Safety Report 18717048 (Version 5)
Quarter: 2021Q4

REPORT INFORMATION
  Report Type: Report from Study
  Country: US (occurrence: US)
  Receive Date: 20210108
  Receipt Date: 20211116
  Transmission Date: 20220303
  Serious: No
  Sender: FDA-Public Use
  Company Number: NVSC2021US003668

PATIENT
  Sex: Male

DRUGS (1)
  1. ENTRESTO [Suspect]
     Active Substance: SACUBITRIL\VALSARTAN
     Indication: Product used for unknown indication
     Dosage: 1 DF, BID (49/51 MG)
     Route: 048

REACTIONS (5)
  - Dyspnoea [Unknown]
  - Heart rate increased [Unknown]
  - Feeling abnormal [Unknown]
  - Hypotension [Unknown]
  - Dizziness [Unknown]
